FAERS Safety Report 11067990 (Version 2)
Quarter: 2016Q1

REPORT INFORMATION
  Report Type: Spontaneous
  Country: IL (occurrence: IL)
  Receive Date: 20150427
  Receipt Date: 20160114
  Transmission Date: 20160525
  Serious: Yes (Hospitalization)
  Sender: FDA-Public Use
  Company Number: IL-JNJFOC-20150417531

PATIENT
  Sex: Female

DRUGS (5)
  1. PRED FORTE [Concomitant]
     Active Substance: PREDNISOLONE ACETATE
     Route: 065
  2. ACAMOL [Concomitant]
     Active Substance: ACETAMINOPHEN
     Route: 065
  3. COSOPT [Concomitant]
     Active Substance: DORZOLAMIDE HYDROCHLORIDE\TIMOLOL MALEATE
     Route: 065
  4. SIMPONI [Suspect]
     Active Substance: GOLIMUMAB
     Indication: RHEUMATOID ARTHRITIS
     Route: 058
     Dates: start: 20140814, end: 201509
  5. VITAMIN D [Concomitant]
     Active Substance: CHOLECALCIFEROL
     Route: 065

REACTIONS (5)
  - Influenza like illness [Recovered/Resolved]
  - Eye infection [Recovering/Resolving]
  - Cataract [Unknown]
  - Hypersensitivity [Recovered/Resolved]
  - Pruritus [Recovered/Resolved]

NARRATIVE: CASE EVENT DATE: 2015
